FAERS Safety Report 24346701 (Version 1)
Quarter: 2024Q3

REPORT INFORMATION
  Report Type: Report from Study
  Country: US (occurrence: US)
  Receive Date: 20240921
  Receipt Date: 20240921
  Transmission Date: 20241017
  Serious: Yes (Other)
  Sender: ROCHE
  Company Number: US-ROCHE-10000083782

PATIENT
  Age: 40 Year
  Sex: Male

DRUGS (11)
  1. OMALIZUMAB [Suspect]
     Active Substance: OMALIZUMAB
     Indication: Chronic spontaneous urticaria
     Route: 065
  2. DESLORATADINE [Concomitant]
     Active Substance: DESLORATADINE
  3. LORATADINE [Concomitant]
     Active Substance: LORATADINE
  4. FEXOFENADINE [Concomitant]
     Active Substance: FEXOFENADINE HYDROCHLORIDE
  5. RUPATADINE [Concomitant]
     Active Substance: RUPATADINE
  6. LEVOCETIRIZINE [Concomitant]
     Active Substance: LEVOCETIRIZINE
  7. BILASTINE [Concomitant]
     Active Substance: BILASTINE
  8. CETIRIZINE [Concomitant]
     Active Substance: CETIRIZINE HYDROCHLORIDE
  9. PREDNISONE [Concomitant]
     Active Substance: PREDNISONE
  10. CORTISONE [Concomitant]
     Active Substance: CORTISONE
  11. DEXAMETHASONE [Concomitant]
     Active Substance: DEXAMETHASONE

REACTIONS (2)
  - Angioedema [Unknown]
  - Anxiety [Unknown]
